FAERS Safety Report 7075040-7 (Version None)
Quarter: 2010Q4

REPORT INFORMATION
  Report Type: 
  Country: None (occurrence: None)
  Receive Date: 20101029
  Receipt Date: 20100204
  Transmission Date: 20110411
  Serious: No
  Sender: FDA-Public Use
  Company Number: US-WYE-H13486810

PATIENT
  Sex: Female

DRUGS (1)
  1. ALAVERT [Suspect]
     Indication: SEASONAL ALLERGY
     Route: 048
     Dates: start: 20100201, end: 20100203

REACTIONS (3)
  - ASTHMA [None]
  - COUGH [None]
  - UNEVALUABLE EVENT [None]
